FAERS Safety Report 24372142 (Version 1)
Quarter: 2024Q3

REPORT INFORMATION
  Report Type: Spontaneous
  Country: FR (occurrence: FR)
  Receive Date: 20240927
  Receipt Date: 20240927
  Transmission Date: 20241016
  Serious: Yes (Hospitalization)
  Sender: CHEPLAPHARM
  Company Number: None

PATIENT
  Age: 73 Year
  Sex: Male
  Weight: 67 kg

DRUGS (7)
  1. OLANZAPINE [Suspect]
     Active Substance: OLANZAPINE
     Indication: Intentional overdose
     Route: 048
     Dates: start: 20240814, end: 20240814
  2. DIAZEPAM [Suspect]
     Active Substance: DIAZEPAM
     Indication: Intentional overdose
     Dosage: 10 MG X20 PCS; 0-0-1
     Route: 048
     Dates: start: 20240814, end: 20240814
  3. GABAPENTIN [Suspect]
     Active Substance: GABAPENTIN
     Indication: Intentional overdose
     Dosage: 300 MG X20 PCS; 2-2-2
     Route: 048
     Dates: start: 20240814, end: 20240814
  4. MORPHINE [Suspect]
     Active Substance: MORPHINE
     Indication: Intentional overdose
     Dosage: 10 MG X20 PCS; 2-0-2
     Route: 048
     Dates: start: 20240814, end: 20240814
  5. VENLAFAXINE [Suspect]
     Active Substance: VENLAFAXINE HYDROCHLORIDE
     Indication: Intentional overdose
     Dates: start: 20240814
  6. CLOZAPINE [Concomitant]
     Active Substance: CLOZAPINE
     Dosage: 0-0-1?DAILY DOSE: 7.5 MILLIGRAM
  7. CLORAZEPATE DIPOTASSIUM [Concomitant]
     Active Substance: CLORAZEPATE DIPOTASSIUM
     Dosage: 0-0-1?DAILY DOSE: 10 MILLIGRAM

REACTIONS (4)
  - Bradypnoea [Recovered/Resolved]
  - Coma [Recovered/Resolved]
  - Poisoning deliberate [Recovered/Resolved]
  - Miosis [Recovered/Resolved]

NARRATIVE: CASE EVENT DATE: 20240814
